FAERS Safety Report 23827030 (Version 3)
Quarter: 2024Q3

REPORT INFORMATION
  Report Type: Spontaneous
  Country: US (occurrence: US)
  Receive Date: 20240507
  Receipt Date: 20240724
  Transmission Date: 20241016
  Serious: Yes (Hospitalization, Other)
  Sender: APELLIS PHARMACEUTICALS
  Company Number: US-APELLIS PHARMACEUTICALS-APL-2024-003510

PATIENT

DRUGS (21)
  1. SYFOVRE [Suspect]
     Active Substance: PEGCETACOPLAN
     Indication: Age-related macular degeneration
     Dosage: 15 MILLIGRAM OD
     Route: 031
     Dates: start: 20230320, end: 20231116
  2. SYFOVRE [Suspect]
     Active Substance: PEGCETACOPLAN
     Indication: Age-related macular degeneration
     Dosage: 15 MILLIGRAM OU
     Route: 031
     Dates: start: 20230420, end: 20230518
  3. SYFOVRE [Suspect]
     Active Substance: PEGCETACOPLAN
     Dosage: UNK,OD
     Dates: start: 20231116
  4. VABYSMO [Suspect]
     Active Substance: FARICIMAB\FARICIMAB-SVOA
     Indication: Product used for unknown indication
     Dosage: UNK
     Dates: start: 20230619
  5. VABYSMO [Suspect]
     Active Substance: FARICIMAB\FARICIMAB-SVOA
     Dosage: UNK
     Dates: start: 20230719
  6. VABYSMO [Suspect]
     Active Substance: FARICIMAB\FARICIMAB-SVOA
     Dosage: UNK
     Dates: start: 20230816
  7. VABYSMO [Suspect]
     Active Substance: FARICIMAB\FARICIMAB-SVOA
     Dosage: UNK
     Dates: start: 20230925
  8. VABYSMO [Suspect]
     Active Substance: FARICIMAB\FARICIMAB-SVOA
     Dosage: UNK
     Dates: start: 20231116
  9. PREDNISONE [Concomitant]
     Active Substance: PREDNISONE
     Indication: Product used for unknown indication
     Dosage: 15 MILLIGRAM, QD
  10. PREDNISONE [Concomitant]
     Active Substance: PREDNISONE
     Dosage: 5MG, UNKNOWN FREQUENCY
  11. PREDNISOLONE [Concomitant]
     Active Substance: PREDNISOLONE
     Indication: Product used for unknown indication
     Dosage: 1 GTT DROPS, QID, OD
  12. PREDNISOLONE [Concomitant]
     Active Substance: PREDNISOLONE
     Dosage: UNKNOWN DOSE?BID
  13. DORZOLAMIDE HYDROCHLORIDE\TIMOLOL MALEATE [Concomitant]
     Active Substance: DORZOLAMIDE HYDROCHLORIDE\TIMOLOL MALEATE
     Indication: Product used for unknown indication
     Dosage: 1 GTT DROPS, BID
  14. AMLODIPINE [Concomitant]
     Active Substance: AMLODIPINE BESYLATE
     Indication: Product used for unknown indication
     Dosage: QD
     Route: 048
  15. LISINOPRIL [Concomitant]
     Active Substance: LISINOPRIL
     Indication: Product used for unknown indication
     Dosage: UNK, QD
     Route: 048
  16. SYSTANE ULTRA PRESERVATIVE FREE [Concomitant]
     Active Substance: POLYETHYLENE GLYCOL 400\PROPYLENE GLYCOL
     Indication: Product used for unknown indication
     Dosage: 1 GTT DROPS, PRN OD
     Route: 047
  17. SYSTANE ULTRA PRESERVATIVE FREE [Concomitant]
     Active Substance: POLYETHYLENE GLYCOL 400\PROPYLENE GLYCOL
     Dosage: 1 GTT DROPS, PRN OS
     Route: 047
  18. MINERALS\VITAMINS [Concomitant]
     Active Substance: MINERALS\VITAMINS
     Indication: Product used for unknown indication
     Dosage: 1 TABLET BID
     Route: 048
  19. FISH OIL [Concomitant]
     Active Substance: FISH OIL
     Indication: Product used for unknown indication
     Dosage: 1 CAPSULE, BID
     Route: 048
  20. CALCIUM WITH VITAMIN D 3 [Concomitant]
     Indication: Product used for unknown indication
     Dosage: QD
     Route: 048
  21. VITAMINS NOS [Concomitant]
     Active Substance: VITAMINS
     Indication: Product used for unknown indication
     Dosage: 1 TABLET QD
     Route: 048

REACTIONS (20)
  - Chorioretinitis [Recovering/Resolving]
  - Chorioretinitis [Recovering/Resolving]
  - Ocular hypertension [Not Recovered/Not Resolved]
  - Ocular hypertension [Not Recovered/Not Resolved]
  - Flank pain [Unknown]
  - Pancreatitis acute [Unknown]
  - Retinal vasculitis [Recovering/Resolving]
  - Retinal vasculitis [Recovering/Resolving]
  - Vitritis [Recovering/Resolving]
  - Choroidal neovascularisation [Recovering/Resolving]
  - Iridocyclitis [Recovering/Resolving]
  - Iridocyclitis [Recovering/Resolving]
  - Retinal haemorrhage [Recovered/Resolved]
  - Dry eye [Unknown]
  - Dry eye [Unknown]
  - Epiretinal membrane [Unknown]
  - Epiretinal membrane [Unknown]
  - Presbyopia [Unknown]
  - Eye naevus [Unknown]
  - Enteritis [Unknown]

NARRATIVE: CASE EVENT DATE: 20231101
